FAERS Safety Report 5108434-7 (Version None)
Quarter: 2006Q3

REPORT INFORMATION
  Report Type: 
  Country: None (occurrence: None)
  Receive Date: 20060731
  Receipt Date: 20060608
  Transmission Date: 20061208
  Serious: No
  Sender: FDA-Public Use
  Company Number: 2006PV015259

PATIENT
  Age: 56 Year
  Sex: Male
  Weight: 93.441 kg

DRUGS (8)
  1. BYETTA [Suspect]
     Indication: DIABETES MELLITUS NON-INSULIN-DEPENDENT
     Dosage: 10 MCG;BID;SC; 5 MCB;BID;SC
     Route: 058
     Dates: end: 20060101
  2. BYETTA [Suspect]
     Indication: DIABETES MELLITUS NON-INSULIN-DEPENDENT
     Dosage: 10 MCG;BID;SC; 5 MCB;BID;SC
     Route: 058
     Dates: start: 20051201, end: 20060201
  3. BYETTA [Suspect]
     Indication: DIABETES MELLITUS NON-INSULIN-DEPENDENT
     Dosage: 10 MCG;BID;SC; 5 MCB;BID;SC
     Route: 058
     Dates: start: 20060201
  4. GLIPIZIDE [Suspect]
     Indication: DRUG USE FOR UNKNOWN INDICATION
     Dosage: 10 MG;HS;PO; 10 MG;HS;PO
     Route: 048
     Dates: start: 20060301
  5. ACTOS [Concomitant]
  6. LANTUS [Concomitant]
  7. GLIPIZIDE [Concomitant]
  8. GLIPIZIDE [Concomitant]

REACTIONS (6)
  - BLOOD GLUCOSE DECREASED [None]
  - BLOOD GLUCOSE INCREASED [None]
  - DECREASED APPETITE [None]
  - DIZZINESS [None]
  - FEELING ABNORMAL [None]
  - WEIGHT DECREASED [None]
